FAERS Safety Report 15340991 (Version 4)
Quarter: 2019Q1

REPORT INFORMATION
  Report Type: Report from Study
  Country: US (occurrence: US)
  Receive Date: 20180831
  Receipt Date: 20190110
  Transmission Date: 20190417
  Serious: No
  Sender: FDA-Public Use
  Company Number: US-009507513-1808USA010041

PATIENT
  Age: 23 Year
  Sex: Female
  Weight: 64.39 kg

DRUGS (1)
  1. IMPLANON [Suspect]
     Active Substance: ETONOGESTREL
     Indication: CONTRACEPTION
     Dosage: ONCE EVERY 3 YEARS
     Route: 059
     Dates: start: 20180806, end: 20180822

REACTIONS (2)
  - Pain [Not Recovered/Not Resolved]
  - Implant site pain [Recovered/Resolved]

NARRATIVE: CASE EVENT DATE: 20180806
